FAERS Safety Report 7750298-7 (Version None)
Quarter: 2011Q3

REPORT INFORMATION
  Report Type: 
  Country: None (occurrence: None)
  Receive Date: 20110914
  Receipt Date: 20110901
  Transmission Date: 20111222
  Serious: Yes (Hospitalization)
  Sender: FDA-Public Use
  Company Number: US-ELI_LILLY_AND_COMPANY-US201108000271

PATIENT
  Sex: Female

DRUGS (16)
  1. VITAMIN D [Concomitant]
     Dosage: 200 IU, TID
     Route: 048
  2. ASPIRIN [Concomitant]
     Dosage: 0.5 DF, QD
     Route: 048
  3. OXYCONTIN [Concomitant]
     Dosage: 20 MG, BID EVERY 12 HOURS
     Route: 048
  4. PRAVASTATIN [Concomitant]
     Dosage: 20 MG, QD
     Route: 048
  5. FISH OIL [Concomitant]
     Dosage: 1200 MG, TID
     Route: 048
  6. MIRALAX [Concomitant]
     Dosage: UNK, BID
     Route: 048
  7. OCEAN NASAL SPRAY [Concomitant]
     Dosage: 1 DF, PRN
  8. VITAMIN D [Concomitant]
     Dosage: 1000 DF, QD
     Route: 048
  9. CALCIUM CARBONATE [Concomitant]
     Dosage: 500 DF, TID
     Route: 048
  10. ACETAMINOPHEN [Concomitant]
     Dosage: 2 DF, TID
     Route: 048
  11. ROXICODONE [Concomitant]
     Dosage: 1 OR 2 EVERY 4 HOURS
     Route: 048
  12. FORTEO [Suspect]
     Dosage: 20 UG, QD
     Route: 065
     Dates: start: 20110221
  13. OMEPRAZOLE [Concomitant]
     Dosage: 20 MG, QD
     Route: 048
  14. MULTI-VITAMIN [Concomitant]
     Dosage: 1 DF, QD
     Route: 048
  15. FORTEO [Suspect]
     Indication: OSTEOPOROSIS
     Dosage: 20 UG, QD
     Route: 065
     Dates: start: 20110117, end: 20110206
  16. GLUCOSAMINE CHONDROITIN [Concomitant]
     Dosage: 1 DF, TID
     Route: 048

REACTIONS (1)
  - DEVICE FAILURE [None]
